FAERS Safety Report 6073011-0 (Version None)
Quarter: 2009Q1

REPORT INFORMATION
  Report Type: 
  Country: None (occurrence: None)
  Receive Date: 20090209
  Receipt Date: 20090209
  Transmission Date: 20090719
  Serious: Yes (Hospitalization)
  Sender: FDA-Public Use
  Company Number: None

PATIENT
  Age: 48 Year
  Sex: Female

DRUGS (4)
  1. BENAZEPRIL HYDROCHLORIDE [Suspect]
     Indication: HYPERTENSION
     Dosage: ORAL;5.0 MILLIGRAM
     Route: 048
     Dates: start: 20080821, end: 20081026
  2. PAROXETINE HCL [Concomitant]
  3. HYDROCHLOROTHIAZIDE [Concomitant]
  4. ASPIRIN [Concomitant]

REACTIONS (1)
  - ANGIOEDEMA [None]
